FAERS Safety Report 8302485-7 (Version None)
Quarter: 2012Q2

REPORT INFORMATION
  Report Type: 
  Country: None (occurrence: None)
  Receive Date: 20120402
  Receipt Date: 20120319
  Transmission Date: 20120825
  Serious: Yes (Other)
  Sender: FDA-Public Use
  Company Number: 2012031695

PATIENT
  Age: 93 Year
  Sex: Male

DRUGS (8)
  1. RIVASTIGMINE [Concomitant]
  2. AVODART [Concomitant]
  3. HALDOL [Concomitant]
  4. PREDNISONE [Concomitant]
  5. PRIVIGEN [Suspect]
     Indication: IDIOPATHIC THROMBOCYTOPENIC PURPURA
     Dosage: 90 G QD, X 2 DAYS, BEGAN AT A RATE OF 27 ML/H UP TO 108 ML/H, INTRAVENOUS (NOT OTHERWISE SPECIFIED)
     Route: 042
     Dates: start: 20120120, end: 20120121
  6. PRIVIGEN [Suspect]
     Indication: IDIOPATHIC THROMBOCYTOPENIC PURPURA
  7. METOPROLOL TARTRATE [Concomitant]
  8. CALCIUM CARBONATE [Concomitant]

REACTIONS (8)
  - FLUID OVERLOAD [None]
  - PENILE PAIN [None]
  - OEDEMA [None]
  - MEDICATION ERROR [None]
  - PULMONARY OEDEMA [None]
  - DYSURIA [None]
  - STAPHYLOCOCCAL INFECTION [None]
  - CHEST PAIN [None]
